FAERS Safety Report 20346808 (Version 3)
Quarter: 2023Q1

REPORT INFORMATION
  Report Type: Spontaneous
  Country: US (occurrence: US)
  Receive Date: 20220118
  Receipt Date: 20230213
  Transmission Date: 20230418
  Serious: No
  Sender: FDA-Public Use
  Company Number: US-PFIZER INC-202200036945

PATIENT
  Age: 52 Year
  Sex: Male

DRUGS (2)
  1. INLYTA [Suspect]
     Active Substance: AXITINIB
     Indication: Renal cancer
     Dosage: 5 MG
     Dates: start: 20211217
  2. INLYTA [Suspect]
     Active Substance: AXITINIB
     Dosage: 5 MG, 2X/DAY
     Dates: start: 20220107

REACTIONS (7)
  - Pruritus [Unknown]
  - Throat tightness [Unknown]
  - Dysphonia [Unknown]
  - Cough [Unknown]
  - Fatigue [Unknown]
  - Diarrhoea [Unknown]
  - Productive cough [Not Recovered/Not Resolved]
